FAERS Safety Report 6952892-X (Version None)
Quarter: 2010Q3

REPORT INFORMATION
  Report Type: 
  Country: None (occurrence: None)
  Receive Date: 20100829
  Receipt Date: 20100517
  Transmission Date: 20110219
  Serious: No
  Sender: FDA-Public Use
  Company Number: US-ABBOTT-10P-163-0645898-00

PATIENT
  Age: 55 Year
  Sex: Male

DRUGS (8)
  1. NIASPAN [Suspect]
     Indication: BLOOD TRIGLYCERIDES INCREASED
     Dates: start: 20100301, end: 20100515
  2. NIASPAN [Suspect]
     Indication: BLOOD TRIGLYCERIDES INCREASED
     Dates: start: 20090801, end: 20100301
  3. METFORMIN [Concomitant]
     Indication: DIABETES MELLITUS
     Dosage: DAILY
  4. LISINOPRIL [Concomitant]
     Indication: HYPERTENSION
     Dosage: DAILY
  5. LOVAZA [Concomitant]
     Indication: BLOOD TRIGLYCERIDES INCREASED
     Dosage: DAILY
  6. LIPITOR [Concomitant]
     Indication: BLOOD TRIGLYCERIDES INCREASED
     Dosage: DAILY
  7. PLAVIX [Concomitant]
     Indication: STENT PLACEMENT
     Dosage: DAILY
  8. ASPIRIN [Concomitant]
     Indication: PROPHYLAXIS
     Dosage: DAILY IN MORNING

REACTIONS (1)
  - PRURITUS GENERALISED [None]
